FAERS Safety Report 6538964-2 (Version None)
Quarter: 2010Q1

REPORT INFORMATION
  Report Type: 
  Country: None (occurrence: None)
  Receive Date: 20100115
  Receipt Date: 20100111
  Transmission Date: 20100710
  Serious: Yes (Other)
  Sender: FDA-Public Use
  Company Number: US-SANOFI-AVENTIS-2010SA001783

PATIENT
  Age: 47 Year
  Sex: Female

DRUGS (4)
  1. AMBIEN CR [Suspect]
     Indication: INSOMNIA
     Route: 048
     Dates: start: 20091229, end: 20091229
  2. DRUG USED IN DIABETES [Concomitant]
  3. ANTIDEPRESSANTS [Concomitant]
  4. ANXIOLYTICS [Concomitant]

REACTIONS (4)
  - IMPAIRED DRIVING ABILITY [None]
  - MUSCLE STRAIN [None]
  - ROAD TRAFFIC ACCIDENT [None]
  - SOMNAMBULISM [None]
